FAERS Safety Report 24036582 (Version 1)
Quarter: 2024Q2

REPORT INFORMATION
  Report Type: Spontaneous
  Country: US (occurrence: None)
  Receive Date: 20240630
  Receipt Date: 20240630
  Transmission Date: 20240716
  Serious: Yes (Other)
  Sender: FDA-Public Use
  Company Number: None

PATIENT
  Age: 68 Year
  Sex: Female
  Weight: 56.25 kg

DRUGS (8)
  1. LATANOPROST [Suspect]
     Active Substance: LATANOPROST
     Indication: Intraocular pressure increased
     Dosage: 1 DROPP AAT BEDTIME OPHTHALMIC
     Route: 047
     Dates: start: 20230901, end: 20240521
  2. VALACYCLOVIR [Concomitant]
     Active Substance: VALACYCLOVIR HYDROCHLORIDE
  3. BUDESONIDE [Concomitant]
     Active Substance: BUDESONIDE
  4. neilmed bottle [Concomitant]
  5. FISH OIL [Concomitant]
     Active Substance: FISH OIL
  6. VITAMIN C [Concomitant]
     Active Substance: ASCORBIC ACID
  7. ZINC [Concomitant]
     Active Substance: PYRITHIONE ZINC\ZINC\ZINC CHLORIDE
  8. CALCIUM [Concomitant]
     Active Substance: CALCIUM

REACTIONS (1)
  - Visual impairment [None]

NARRATIVE: CASE EVENT DATE: 20240401
